FAERS Safety Report 6722585-2 (Version None)
Quarter: 2010Q2

REPORT INFORMATION
  Report Type: 
  Country: None (occurrence: None)
  Receive Date: 20100512
  Receipt Date: 20100430
  Transmission Date: 20101027
  Serious: Yes (Death)
  Sender: FDA-Public Use
  Company Number: US-PFIZER INC-2010054988

PATIENT
  Sex: Male

DRUGS (1)
  1. VFEND [Suspect]
     Dosage: 300 MG, 2X/DAY

REACTIONS (1)
  - DEATH [None]
